FAERS Safety Report 10024448 (Version 2)
Quarter: 2014Q1

REPORT INFORMATION
  Report Type: Spontaneous
  Country: US (occurrence: US)
  Receive Date: 20140320
  Receipt Date: 20140320
  Transmission Date: 20141002
  Serious: No
  Sender: FDA-Public Use
  Company Number: US-ENDO PHARMACEUTICALS INC.-OPCR20130142

PATIENT
  Sex: Male

DRUGS (2)
  1. OPANA ER 30MG [Suspect]
     Indication: NECK PAIN
     Route: 048
     Dates: end: 2013
  2. OXYMORPHONE IR [Suspect]
     Indication: PAIN
     Dosage: 10 MG

REACTIONS (3)
  - Abdominal pain [Recovering/Resolving]
  - Nausea [Not Recovered/Not Resolved]
  - Drug ineffective [Recovered/Resolved]
